FAERS Safety Report 23570257 (Version 1)
Quarter: 2024Q1

REPORT INFORMATION
  Report Type: Spontaneous
  Country: PL (occurrence: PL)
  Receive Date: 20240227
  Receipt Date: 20240227
  Transmission Date: 20240409
  Serious: Yes (Hospitalization)
  Sender: FDA-Public Use
  Company Number: PL-MERCA-20221229

PATIENT
  Age: 41 Year
  Sex: Male

DRUGS (6)
  1. ATORVASTATIN [Interacting]
     Active Substance: ATORVASTATIN
     Indication: Dyslipidaemia
     Dosage: 40 MG, QD
     Route: 065
  2. IBUPROFEN [Interacting]
     Active Substance: IBUPROFEN
     Indication: Visceral pain
     Dosage: 1800 MG, QD
     Route: 065
  3. OMEPRAZOLE [Interacting]
     Active Substance: OMEPRAZOLE
     Indication: Abdominal pain
     Dosage: 40 MG, QD
     Route: 048
  4. QUETIAPINE [Interacting]
     Active Substance: QUETIAPINE
     Indication: Anxiety
     Dosage: 100 MG, QD
     Route: 065
  5. QUETIAPINE [Interacting]
     Active Substance: QUETIAPINE
     Indication: Insomnia
  6. TRAMADOL [Interacting]
     Active Substance: TRAMADOL\TRAMADOL HYDROCHLORIDE
     Indication: Visceral pain
     Dosage: INITIALLY 200 MG/DAY FURTHER THE DOSE WAS INCREASED TO 300 MG/DAY
     Route: 065

REACTIONS (4)
  - Seizure [Recovered/Resolved]
  - Sleep disorder [Recovering/Resolving]
  - Anxiety [Recovering/Resolving]
  - Drug interaction [Recovered/Resolved]
